FAERS Safety Report 18494395 (Version 1)
Quarter: 2020Q4

REPORT INFORMATION
  Report Type: Spontaneous
  Country: DE (occurrence: DE)
  Receive Date: 20201112
  Receipt Date: 20201112
  Transmission Date: 20210114
  Serious: Yes (Hospitalization)
  Sender: FDA-Public Use
  Company Number: DE-TEVA-2020-DE-1847218

PATIENT
  Age: 79 Year
  Sex: Male

DRUGS (7)
  1. TILIDINE/NALOXONE [Suspect]
     Active Substance: NALOXONE HYDROCHLORIDE\TILIDINE HYDROCHLORIDE
     Dosage: 2 DOSAGE FORMS DAILY; 8|100 MG, 1-0-1-0,
     Route: 048
  2. TORASEMID [Suspect]
     Active Substance: TORSEMIDE
     Dosage: 5 MILLIGRAM DAILY;  0-1-0-0,
     Route: 048
  3. MAGIUM K FORTE [Concomitant]
     Dosage: 1 DOSAGE FORMS DAILY; NK MG, 0-0-1-0,
     Route: 048
  4. ALLOPURINOL. [Concomitant]
     Active Substance: ALLOPURINOL
     Dosage: 300 MILLIGRAM DAILY;  0-0-1-0,
     Route: 048
  5. CANDESARTAN. [Concomitant]
     Active Substance: CANDESARTAN
     Dosage: 32 MILLIGRAM DAILY;  1-0-0-0,
     Route: 048
  6. SPIRO COMP. FORTE-RATIOPHARM 100 MG/20 MG FILMTABLETTEN [Suspect]
     Active Substance: FUROSEMIDE\SPIRONOLACTONE
     Dosage: .5 DOSAGE FORMS DAILY; 20|100 MG, 0.5-0-0-0,
     Route: 048
  7. SIMVASTATIN. [Concomitant]
     Active Substance: SIMVASTATIN
     Dosage: 20 MILLIGRAM DAILY;  0-0-1-0,
     Route: 048

REACTIONS (11)
  - Dysuria [Unknown]
  - Constipation [Unknown]
  - General physical health deterioration [Unknown]
  - Abdominal pain lower [Unknown]
  - Dehydration [Unknown]
  - Dyspnoea [Unknown]
  - Nausea [Unknown]
  - Condition aggravated [Unknown]
  - Electrolyte imbalance [Unknown]
  - Vomiting [Unknown]
  - Abdominal pain [Unknown]
